FAERS Safety Report 7124943-3 (Version None)
Quarter: 2010Q4

REPORT INFORMATION
  Report Type: 
  Country: None (occurrence: None)
  Receive Date: 20101129
  Receipt Date: 20101118
  Transmission Date: 20110411
  Serious: Yes (Hospitalization)
  Sender: FDA-Public Use
  Company Number: US-JNJFOC-20101106842

PATIENT
  Age: 17 Year
  Sex: Male

DRUGS (7)
  1. REMICADE [Suspect]
     Indication: CROHN'S DISEASE
     Route: 042
  2. REMICADE [Suspect]
     Dosage: FIRST INFUSION
     Route: 042
  3. PROCTOFOAM [Concomitant]
     Indication: CROHN'S DISEASE
  4. CIPRO [Concomitant]
     Indication: CROHN'S DISEASE
  5. FLAGYL [Concomitant]
     Indication: CROHN'S DISEASE
  6. PREDNISONE [Concomitant]
     Indication: CROHN'S DISEASE
  7. PROTONIX [Concomitant]

REACTIONS (1)
  - NEPHROLITHIASIS [None]
